FAERS Safety Report 25913209 (Version 1)
Quarter: 2025Q4

REPORT INFORMATION
  Report Type: Spontaneous
  Country: CN (occurrence: CN)
  Receive Date: 20251013
  Receipt Date: 20251013
  Transmission Date: 20260118
  Serious: Yes (Other)
  Sender: Kenvue
  Company Number: CN-KENVUE-20251002393

PATIENT

DRUGS (2)
  1. CHILDRENS MOTRIN [Suspect]
     Active Substance: IBUPROFEN
     Indication: Urinary tract infection
     Dosage: 15 MILLILITER, AS NEEDED
     Route: 048
     Dates: start: 20250605, end: 20250610
  2. LEVOFLOXACIN [Suspect]
     Active Substance: LEVOFLOXACIN
     Indication: Urinary tract infection
     Dosage: 1 DOSAGE FORM, ONCE A DAY
     Route: 048
     Dates: start: 20250605, end: 20250610

REACTIONS (5)
  - Scrotal erythema [Recovering/Resolving]
  - Blister [Recovering/Resolving]
  - Product administered to patient of inappropriate age [Unknown]
  - Rash [Recovering/Resolving]
  - Pruritus [Recovering/Resolving]

NARRATIVE: CASE EVENT DATE: 20250605
